FAERS Safety Report 10174288 (Version 1)
Quarter: 2014Q2

REPORT INFORMATION
  Report Type: Spontaneous
  Country: US (occurrence: None)
  Receive Date: 20140514
  Receipt Date: 20140514
  Transmission Date: 20141212
  Serious: Yes (Hospitalization)
  Sender: FDA-Public Use
  Company Number: None

PATIENT
  Age: 64 Year
  Sex: Female

DRUGS (7)
  1. IMBRUVICA 140 MG PHARMACYCLICS [Suspect]
     Indication: PRODUCT USED FOR UNKNOWN INDICATION
     Route: 048
     Dates: start: 20140416
  2. POTASSIUM [Concomitant]
  3. LISINSOPRIL [Concomitant]
  4. CHLORPHALADONE [Concomitant]
  5. EFFEXOR [Concomitant]
  6. MAGNESIUM [Concomitant]
  7. GLUCOSAMINE CRONDROIT [Concomitant]

REACTIONS (3)
  - Febrile neutropenia [None]
  - Diarrhoea [None]
  - Richter^s syndrome [None]
